FAERS Safety Report 4449234-0 (Version None)
Quarter: 2004Q3

REPORT INFORMATION
  Report Type: 
  Country: None (occurrence: None)
  Receive Date: 20040910
  Receipt Date: 20040901
  Transmission Date: 20050211
  Serious: Yes (Life-Threatening)
  Sender: FDA-Public Use
  Company Number: 2004231339US

PATIENT
  Age: 4 Year
  Sex: Female
  Weight: 32.6 kg

DRUGS (1)
  1. GENOTROPIN [Suspect]
     Indication: PRADER-WILLI SYNDROME
     Dosage: 7 MG, WEEKLY, SUBCUTANEOUS
     Route: 058
     Dates: start: 20021218, end: 20030929

REACTIONS (2)
  - COUGH [None]
  - SLEEP APNOEA SYNDROME [None]
